FAERS Safety Report 23047514 (Version 2)
Quarter: 2023Q4

REPORT INFORMATION
  Report Type: Spontaneous
  Country: ES (occurrence: ES)
  Receive Date: 20231010
  Receipt Date: 20231103
  Transmission Date: 20240110
  Serious: Yes (Other)
  Sender: FDA-Public Use
  Company Number: ES-AUROBINDO-AUR-APL-2023-062187

PATIENT
  Age: 46 Year
  Sex: Female

DRUGS (3)
  1. OMEPRAZOLE [Suspect]
     Active Substance: OMEPRAZOLE
     Indication: Ulcer
     Dosage: UNK
     Route: 065
  2. ESOMEPRAZOLE [Suspect]
     Active Substance: ESOMEPRAZOLE
     Indication: Ulcer
     Dosage: UNK
     Route: 065
  3. SUCRALFATE [Suspect]
     Active Substance: SUCRALFATE
     Indication: Ulcer
     Dosage: UNK
     Route: 065

REACTIONS (1)
  - Drug ineffective [Unknown]
